FAERS Safety Report 23403258 (Version 4)
Quarter: 2024Q1

REPORT INFORMATION
  Report Type: Spontaneous
  Country: US (occurrence: US)
  Receive Date: 20240116
  Receipt Date: 20240212
  Transmission Date: 20240410
  Serious: Yes (Other)
  Sender: FDA-Public Use
  Company Number: US-SA-SAC20240110000649

PATIENT
  Age: 15 Year
  Sex: Female

DRUGS (1)
  1. DUPIXENT [Suspect]
     Active Substance: DUPILUMAB
     Indication: Dermatitis atopic
     Dosage: 300 MG, QOW
     Route: 058
     Dates: start: 202312, end: 2024

REACTIONS (9)
  - Anaphylactic reaction [Unknown]
  - Lymphadenopathy [Unknown]
  - Influenza like illness [Unknown]
  - Nasopharyngitis [Unknown]
  - Circumoral oedema [Unknown]
  - Urticaria [Unknown]
  - Rash [Unknown]
  - Arthralgia [Unknown]
  - Eczema [Unknown]

NARRATIVE: CASE EVENT DATE: 20231201
